FAERS Safety Report 14389022 (Version 2)
Quarter: 2018Q2

REPORT INFORMATION
  Report Type: Spontaneous
  Country: US (occurrence: US)
  Receive Date: 20180115
  Receipt Date: 20180618
  Transmission Date: 20180711
  Serious: Yes (Other)
  Sender: FDA-Public Use
  Company Number: US-SA-2017SA226691

PATIENT
  Age: 61 Year
  Sex: Female
  Weight: 83 kg

DRUGS (6)
  1. BYSTOLIC [Concomitant]
     Active Substance: NEBIVOLOL HYDROCHLORIDE
     Dosage: UNK UNK,UNK
     Route: 065
     Dates: start: 2000
  2. TAXOTERE [Suspect]
     Active Substance: DOCETAXEL
     Indication: BREAST CANCER
     Dosage: 140 MG,Q3W
     Route: 051
     Dates: start: 20150721, end: 20150721
  3. PARAPLATIN [Concomitant]
     Active Substance: CARBOPLATIN
  4. TRASTUZUMAB. [Concomitant]
     Active Substance: TRASTUZUMAB
  5. PERTUZUMAB. [Concomitant]
     Active Substance: PERTUZUMAB
  6. ATORVASTATIN [Concomitant]
     Active Substance: ATORVASTATIN
     Dosage: UNK UNK,UNK
     Route: 065
     Dates: start: 2000

REACTIONS (5)
  - Alopecia [Recovering/Resolving]
  - Impaired quality of life [Unknown]
  - Psychological trauma [Unknown]
  - Anxiety [Unknown]
  - Emotional distress [Unknown]

NARRATIVE: CASE EVENT DATE: 201508
